FAERS Safety Report 6817966-2 (Version None)
Quarter: 2010Q3

REPORT INFORMATION
  Report Type: 
  Country: None (occurrence: None)
  Receive Date: 20100706
  Receipt Date: 20100604
  Transmission Date: 20110219
  Serious: No
  Sender: FDA-Public Use
  Company Number: US-BAYER-201025843NA

PATIENT
  Age: 76 Year
  Sex: Male

DRUGS (1)
  1. EOVIST [Suspect]
     Indication: NUCLEAR MAGNETIC RESONANCE IMAGING ABDOMINAL
     Dosage: AS USED: 10 ML
     Dates: start: 20100603, end: 20100603

REACTIONS (3)
  - COUGH [None]
  - PRURITUS [None]
  - URTICARIA [None]
